FAERS Safety Report 17759910 (Version 3)
Quarter: 2020Q2

REPORT INFORMATION
  Report Type: Spontaneous
  Country: PL (occurrence: PL)
  Receive Date: 20200508
  Receipt Date: 20200610
  Transmission Date: 20200714
  Serious: Yes (Other)
  Sender: FDA-Public Use
  Company Number: NVSC2020PL012682

PATIENT
  Age: 71 Year
  Sex: Female

DRUGS (25)
  1. TRASTUZUMAB. [Suspect]
     Active Substance: TRASTUZUMAB
     Indication: PRODUCT USED FOR UNKNOWN INDICATION
     Dosage: 640 MG
     Route: 042
     Dates: start: 20160428
  2. LETROZOLE. [Suspect]
     Active Substance: LETROZOLE
     Indication: HORMONE THERAPY
     Dosage: 2.5 MG, QD (1 X 2.5 MG P.O.)
     Route: 048
  3. LETROZOLE. [Suspect]
     Active Substance: LETROZOLE
     Indication: METASTASES TO LUNG
  4. GLUCOPHAGE [Concomitant]
     Active Substance: METFORMIN HYDROCHLORIDE
     Dosage: 750 MG, Q8H
     Route: 065
     Dates: start: 2007
  5. EUTHYROX [Concomitant]
     Active Substance: LEVOTHYROXINE SODIUM
     Indication: HYPOTHYROIDISM
     Dosage: 75 UG, QD
     Route: 065
     Dates: start: 2007
  6. ATORVASTEROL [Concomitant]
     Active Substance: ATORVASTATIN
     Indication: DYSLIPIDAEMIA
  7. ATORVASTATIN [Suspect]
     Active Substance: ATORVASTATIN
     Indication: LIPIDS ABNORMAL
     Dosage: UNK
     Route: 065
  8. TRASTUZUMAB. [Suspect]
     Active Substance: TRASTUZUMAB
     Dosage: 8 MG/KG
     Route: 065
  9. LETROZOLE. [Suspect]
     Active Substance: LETROZOLE
     Indication: METASTASES TO BONE
  10. GLUCOPHAGE [Concomitant]
     Active Substance: METFORMIN HYDROCHLORIDE
     Indication: TYPE 2 DIABETES MELLITUS
     Dosage: THE PATIENT WAS TREATED SINCE 2007 FOR TYPE 2 DIABETES MELLITUS (GLUCOPHAGE 3 X 750 MG)
     Route: 065
     Dates: start: 2007
  11. BISOCARD [Concomitant]
     Active Substance: BISOPROLOL
     Indication: HYPERTENSION
     Dosage: THE PATIENT WAS TREATED SINCE 2007 FOR HYPERTENSION (BISOCARD 1 X 2.5 MG, TRITACE 2 X 5 MG).
     Route: 065
     Dates: start: 2007
  12. PACLITAXEL. [Suspect]
     Active Substance: PACLITAXEL
     Dosage: 60 MG/M2
     Route: 065
     Dates: end: 201611
  13. BISOPROLOL FUMARATE. [Suspect]
     Active Substance: BISOPROLOL FUMARATE
     Indication: HYPERTENSION
     Dosage: 2.5 MG, QD
     Route: 065
  14. METFORMIN [Suspect]
     Active Substance: METFORMIN HYDROCHLORIDE
     Indication: TYPE 2 DIABETES MELLITUS
     Dosage: 750 MG, 3X PER DAY
     Route: 065
  15. LETROZOLE. [Suspect]
     Active Substance: LETROZOLE
     Indication: BREAST CANCER METASTATIC
  16. PACLITAXEL. [Suspect]
     Active Substance: PACLITAXEL
     Dosage: 80 MG/M2
     Route: 065
     Dates: start: 20160428
  17. EXEMESTAN [Concomitant]
     Active Substance: EXEMESTANE
     Indication: PRODUCT USED FOR UNKNOWN INDICATION
     Dosage: 25 MG (1 DF)
     Route: 065
  18. RAMIPRIL. [Suspect]
     Active Substance: RAMIPRIL
     Indication: HYPERTENSION
     Dosage: 5 MG, 2X PER DAY
     Route: 065
  19. TRITACE [Concomitant]
     Active Substance: RAMIPRIL
     Dosage: 5 MG, Q12H
     Route: 065
     Dates: start: 2007
  20. PACLITAXEL. [Suspect]
     Active Substance: PACLITAXEL
     Indication: PRODUCT USED FOR UNKNOWN INDICATION
     Dosage: 150 MG
     Route: 042
     Dates: start: 20160428, end: 201611
  21. LETROZOLE. [Suspect]
     Active Substance: LETROZOLE
     Indication: CANCER HORMONAL THERAPY
  22. BISOCARD [Concomitant]
     Active Substance: BISOPROLOL
     Indication: HYPERTENSION
     Dosage: 2.5 MG, QD
     Route: 065
     Dates: start: 2007
  23. TRITACE [Concomitant]
     Active Substance: RAMIPRIL
     Indication: HYPERTENSION
     Dosage: THE PATIENT WAS TREATED SINCE 2007 FOR HYPERTENSION (BISOCARD 1 X 2.5 MG, TRITACE 2 X 5 MG).
     Route: 065
     Dates: start: 2007
  24. ATORVASTEROL [Concomitant]
     Active Substance: ATORVASTATIN
     Indication: LIPIDOSIS
     Dosage: 20 MG, QD
     Route: 065
     Dates: start: 2007
  25. ATORVASTEROL [Concomitant]
     Active Substance: ATORVASTATIN
     Indication: LIPID METABOLISM DISORDER

REACTIONS (7)
  - Bone pain [Unknown]
  - Anaemia [Unknown]
  - Polyneuropathy [Unknown]
  - Arthralgia [Unknown]
  - Visual impairment [Unknown]
  - Neoplasm progression [Unknown]
  - Therapy partial responder [Unknown]

NARRATIVE: CASE EVENT DATE: 2015
